FAERS Safety Report 6938707-4 (Version None)
Quarter: 2010Q3

REPORT INFORMATION
  Report Type: 
  Country: None (occurrence: None)
  Receive Date: 20100824
  Receipt Date: 20100811
  Transmission Date: 20110219
  Serious: Yes (Disabling)
  Sender: FDA-Public Use
  Company Number: PHHY2009HK49697

PATIENT
  Sex: Female
  Weight: 48 kg

DRUGS (1)
  1. LAMISIL [Suspect]
     Indication: ONYCHOMYCOSIS
     Dosage: 250 MG, QD
     Route: 048
     Dates: start: 20090710, end: 20090907

REACTIONS (5)
  - ANXIETY [None]
  - DECREASED APPETITE [None]
  - DEPRESSED MOOD [None]
  - DYSGEUSIA [None]
  - WEIGHT DECREASED [None]
